FAERS Safety Report 13097109 (Version 1)
Quarter: 2017Q1

REPORT INFORMATION
  Report Type: Spontaneous
  Country: US (occurrence: US)
  Receive Date: 20170106
  Receipt Date: 20170106
  Transmission Date: 20170428
  Serious: No
  Sender: FDA-Public Use
  Company Number: None

PATIENT
  Sex: Male

DRUGS (1)
  1. NINLARO [Suspect]
     Active Substance: IXAZOMIB
     Indication: PLASMA CELL MYELOMA
     Dosage: 4MG DAY 1, DAY 8 AND DAY 15 OF A 28 DAY CYCLE PO
     Route: 048
     Dates: start: 20161213

REACTIONS (3)
  - Burning sensation [None]
  - Peripheral swelling [None]
  - Paraesthesia [None]
